FAERS Safety Report 25094044 (Version 1)
Quarter: 2025Q1

REPORT INFORMATION
  Report Type: Spontaneous
  Country: US (occurrence: None)
  Receive Date: 20250318
  Receipt Date: 20250318
  Transmission Date: 20250408
  Serious: Yes (Disabling)
  Sender: FDA-CTU
  Company Number: None

PATIENT
  Age: 46 Year
  Sex: Male
  Weight: 105.75 kg

DRUGS (1)
  1. FINASTERIDE [Suspect]
     Active Substance: FINASTERIDE
     Indication: Androgenetic alopecia
     Dates: start: 20220101, end: 20250225

REACTIONS (2)
  - Tinnitus [None]
  - Asthenia [None]

NARRATIVE: CASE EVENT DATE: 20250301
